FAERS Safety Report 17489369 (Version 1)
Quarter: 2020Q1

REPORT INFORMATION
  Report Type: Spontaneous
  Country: US (occurrence: US)
  Receive Date: 20200303
  Receipt Date: 20200303
  Transmission Date: 20200409
  Serious: No
  Sender: FDA-Public Use
  Company Number: US-ENDO PHARMACEUTICALS INC-2019-108190

PATIENT
  Age: 52 Year
  Sex: Female
  Weight: 70.3 kg

DRUGS (4)
  1. BARIACTIV IRON, VITAMIN C [Suspect]
     Active Substance: ASCORBIC ACID\IRON
     Indication: SUPPLEMENTATION THERAPY
     Dosage: UNK UNKNOWN, UNKNOWN
     Route: 065
     Dates: start: 201604, end: 201604
  2. NASCOBAL [Suspect]
     Active Substance: CYANOCOBALAMIN
     Indication: SUPPLEMENTATION THERAPY
     Dosage: UNK UNKNOWN, UNKNOWN
     Route: 065
     Dates: start: 201604, end: 201604
  3. NASCOBAL [Suspect]
     Active Substance: CYANOCOBALAMIN
     Dosage: UNK UNKNOWN, UNKNOWN
     Route: 065
     Dates: start: 201909
  4. BARIACTIV IRON, VITAMIN C [Suspect]
     Active Substance: ASCORBIC ACID\IRON
     Dosage: UNK UNKNOWN, UNKNOWN
     Route: 065
     Dates: start: 201909

REACTIONS (1)
  - Nausea [Recovered/Resolved]

NARRATIVE: CASE EVENT DATE: 201604
